FAERS Safety Report 8606835 (Version 4)
Quarter: 2014Q1

REPORT INFORMATION
  Report Type: Spontaneous
  Country: US (occurrence: US)
  Receive Date: 20120611
  Receipt Date: 20140108
  Transmission Date: 20141002
  Serious: Yes (Hospitalization, Disabling)
  Sender: FDA-Public Use
  Company Number: US-ASTRAZENECA-2012SE35248

PATIENT
  Age: 33 Year
  Sex: Female
  Weight: 86.2 kg

DRUGS (13)
  1. NEXIUM [Suspect]
     Indication: GASTRIC ULCER
     Dosage: TWICE A DAY
     Route: 048
     Dates: start: 19950915, end: 2010
  2. TUMS [Concomitant]
  3. OXYCOD [Concomitant]
  4. APAP [Concomitant]
     Indication: BACK PAIN
  5. GABAPENTIN [Concomitant]
  6. CHLORZAXANZON [Concomitant]
  7. SERTRALINE [Concomitant]
  8. BUSPIRONE [Concomitant]
  9. LEVLEN [Concomitant]
     Dates: start: 19990125
  10. VANCENASE [Concomitant]
     Dates: start: 19990125
  11. DEMULEN [Concomitant]
     Dates: start: 19990608
  12. METOCLOPRAMIDE [Concomitant]
     Dates: start: 19990430
  13. CELEXA [Concomitant]

REACTIONS (10)
  - Bipolar disorder [Unknown]
  - Ulcer [Unknown]
  - Back pain [Unknown]
  - Nasopharyngitis [Unknown]
  - Osteoporosis [Unknown]
  - Multiple fractures [Unknown]
  - Bone disorder [Unknown]
  - Exostosis [Unknown]
  - Intervertebral disc degeneration [Unknown]
  - Intervertebral disc protrusion [Unknown]
